FAERS Safety Report 25289286 (Version 1)
Quarter: 2025Q2

REPORT INFORMATION
  Report Type: Spontaneous
  Country: US (occurrence: None)
  Receive Date: 20250509
  Receipt Date: 20250509
  Transmission Date: 20250717
  Serious: Yes (Hospitalization)
  Sender: FDA-CTU
  Company Number: None

PATIENT
  Age: 57 Year
  Sex: Female
  Weight: 72.6 kg

DRUGS (8)
  1. LEXISCAN [Suspect]
     Active Substance: REGADENOSON
     Indication: Cardiac stress test
     Route: 042
     Dates: start: 20250422, end: 20250422
  2. NORVASC [Concomitant]
     Active Substance: AMLODIPINE BESYLATE
  3. CHOLECALCIFEROL [Concomitant]
     Active Substance: CHOLECALCIFEROL
  4. KLONOPIN [Concomitant]
     Active Substance: CLONAZEPAM
  5. LEXAPRO [Concomitant]
     Active Substance: ESCITALOPRAM OXALATE
  6. LASIX [Concomitant]
     Active Substance: FUROSEMIDE
  7. losartan-hydrochlorothiazide (HYZAAR) [Concomitant]
  8. potassium chloride (KLOR-CON M10) [Concomitant]

REACTIONS (7)
  - Dyspnoea [None]
  - Chest pain [None]
  - Pain [None]
  - Nausea [None]
  - Electrocardiogram ST segment depression [None]
  - Electrocardiogram T wave abnormal [None]
  - Chest pain [None]

NARRATIVE: CASE EVENT DATE: 20250422
